FAERS Safety Report 6571570-2 (Version None)
Quarter: 2010Q1

REPORT INFORMATION
  Report Type: 
  Country: None (occurrence: None)
  Receive Date: 20100205
  Receipt Date: 20100105
  Transmission Date: 20100710
  Serious: Yes (Death)
  Sender: FDA-Public Use
  Company Number: US-TYCO HEALTHCARE/MALLINCKRODT-T201000129

PATIENT
  Age: 47 Year
  Sex: Female

DRUGS (6)
  1. OXYCODONE HCL [Suspect]
     Dosage: UNK
     Route: 048
  2. SNAKE VENOM TOXIN [Suspect]
     Dosage: UNK
  3. VERAPAMIL [Suspect]
     Dosage: UNK
     Route: 048
  4. HYDROCODONE [Suspect]
     Dosage: UNK
     Route: 048
  5. DIAZEPAM [Suspect]
     Dosage: UNK
     Route: 048
  6. MIRTAZAPINE [Suspect]
     Dosage: UNK
     Route: 048

REACTIONS (2)
  - CARDIO-RESPIRATORY ARREST [None]
  - VENOMOUS BITE [None]
